FAERS Safety Report 5103950-6 (Version None)
Quarter: 2006Q3

REPORT INFORMATION
  Report Type: 
  Country: None (occurrence: None)
  Receive Date: 20060908
  Receipt Date: 20060829
  Transmission Date: 20061208
  Serious: Yes (Hospitalization)
  Sender: FDA-Public Use
  Company Number: 2006BI012341

PATIENT
  Age: 32 Year
  Sex: Male

DRUGS (2)
  1. AVONEX [Suspect]
     Indication: MULTIPLE SCLEROSIS
     Dosage: 30 UG;QW;IM
     Route: 030
     Dates: start: 20050915, end: 20060427
  2. AVONEX [Suspect]
     Indication: MULTIPLE SCLEROSIS
     Dosage: 30 UG;QW;IM
     Route: 030
     Dates: start: 20060629

REACTIONS (8)
  - ENTERITIS [None]
  - EPISTAXIS [None]
  - FACIAL BONES FRACTURE [None]
  - GASTROINTESTINAL INFECTION [None]
  - LACERATION [None]
  - SINUSITIS [None]
  - TOOTH LOSS [None]
  - VICTIM OF CRIME [None]
